FAERS Safety Report 10600552 (Version 1)
Quarter: 2014Q4

REPORT INFORMATION
  Report Type: Spontaneous
  Country: DE (occurrence: DE)
  Receive Date: 20141124
  Receipt Date: 20141124
  Transmission Date: 20150529
  Serious: Yes (Congenital Anomaly, Other)
  Sender: FDA-Public Use
  Company Number: DE-AUROBINDO-AUR-APL-2014-12144

PATIENT
  Age: 1 Day
  Sex: Male
  Weight: 2.81 kg

DRUGS (3)
  1. FOLIO [Concomitant]
     Active Substance: FOLIC ACID
     Indication: PROPHYLAXIS OF NEURAL TUBE DEFECT
     Dosage: 0.4 MG, DAILY
     Route: 064
     Dates: start: 20130719, end: 20140120
  2. SERTRALINE [Suspect]
     Active Substance: SERTRALINE HYDROCHLORIDE
     Indication: DEPRESSION
     Dosage: 50 MG, DAILY
     Route: 064
  3. INFLUENZA VACCINE INACTIVATED [Concomitant]
     Indication: IMMUNISATION
     Dosage: UNK
     Route: 064
     Dates: start: 20131015, end: 20131015

REACTIONS (8)
  - Small for dates baby [Unknown]
  - Finger amputation [None]
  - Polydactyly [Recovering/Resolving]
  - Breech presentation [None]
  - Foetal exposure during pregnancy [Unknown]
  - Caesarean section [None]
  - Congenital nail disorder [None]
  - Maternal drugs affecting foetus [None]

NARRATIVE: CASE EVENT DATE: 20140420
